FAERS Safety Report 4805819-0 (Version None)
Quarter: 2005Q4

REPORT INFORMATION
  Report Type: 
  Country: None (occurrence: None)
  Receive Date: 20051018
  Receipt Date: 20051003
  Transmission Date: 20060501
  Serious: Yes (Hospitalization)
  Sender: FDA-Public Use
  Company Number: 2005AP000713

PATIENT
  Age: 47 Year
  Sex: Female

DRUGS (12)
  1. PAROXETINE HCL [Suspect]
     Indication: ANXIETY
     Dosage: 20 MG, BID, PO
     Route: 048
  2. PAROXETINE HCL [Suspect]
     Indication: DEPRESSION
     Dosage: 20 MG, BID, PO
     Route: 048
  3. PAROXETINE HCL [Suspect]
     Indication: OBSESSIVE-COMPULSIVE DISORDER
     Dosage: 20 MG, BID, PO
     Route: 048
  4. NEXIUM [Suspect]
     Indication: GASTROOESOPHAGEAL REFLUX DISEASE
     Dosage: 40 MG; BID; PO
     Route: 048
  5. REMERON [Concomitant]
  6. ATIVAN [Concomitant]
  7. ENALAPRIL [Concomitant]
  8. METOPROLOL [Concomitant]
  9. PLAQUENIL [Concomitant]
  10. HUMIRA [Concomitant]
  11. IMODIUM [Concomitant]
  12. LOMOTIL [Concomitant]

REACTIONS (5)
  - ABDOMINAL PAIN [None]
  - AGITATION [None]
  - DEHYDRATION [None]
  - DIARRHOEA [None]
  - DRUG INEFFECTIVE [None]
